FAERS Safety Report 18113963 (Version 1)
Quarter: 2020Q3

REPORT INFORMATION
  Report Type: Spontaneous
  Country: US (occurrence: US)
  Receive Date: 20200805
  Receipt Date: 20200805
  Transmission Date: 20201103
  Serious: Yes (Disabling)
  Sender: FDA-Public Use
  Company Number: None

PATIENT
  Age: 44 Year
  Sex: Female
  Weight: 60.3 kg

DRUGS (6)
  1. BLUMEN ADVANCED HAND SANITIZER CLEAR [Suspect]
     Active Substance: ALCOHOL
     Indication: COVID-19 PROPHYLAXIS
     Dosage: ?          QUANTITY:8 OUNCE(S);?
     Route: 061
     Dates: start: 20200501, end: 20200709
  2. COLLAGEN [Concomitant]
     Active Substance: COLLAGEN
  3. ZYRTEC [Concomitant]
     Active Substance: CETIRIZINE HYDROCHLORIDE
  4. VIVISCAL [Concomitant]
  5. PROBIOTIC [Concomitant]
     Active Substance: PROBIOTICS NOS
  6. OLLY MULTIVITAMINS [Concomitant]

REACTIONS (5)
  - Headache [None]
  - Fatigue [None]
  - Feeling abnormal [None]
  - Malaise [None]
  - Vision blurred [None]

NARRATIVE: CASE EVENT DATE: 20200501
